FAERS Safety Report 25585085 (Version 2)
Quarter: 2025Q3

REPORT INFORMATION
  Report Type: Spontaneous
  Country: EU (occurrence: EU)
  Receive Date: 20250721
  Receipt Date: 20250728
  Transmission Date: 20251020
  Serious: Yes (Other)
  Sender: MYLAN
  Company Number: EU-MYLANLABS-2025M1059430

PATIENT
  Age: 70 Year
  Sex: Female

DRUGS (32)
  1. LYRICA [Suspect]
     Active Substance: PREGABALIN
     Indication: Product used for unknown indication
     Dosage: 1 DOSAGE FORM, BID
  2. LYRICA [Suspect]
     Active Substance: PREGABALIN
     Dosage: 1 DOSAGE FORM, BID
     Route: 065
  3. LYRICA [Suspect]
     Active Substance: PREGABALIN
     Dosage: 1 DOSAGE FORM, BID
     Route: 065
  4. LYRICA [Suspect]
     Active Substance: PREGABALIN
     Dosage: 1 DOSAGE FORM, BID
  5. LYRICA [Suspect]
     Active Substance: PREGABALIN
     Indication: Product used for unknown indication
     Dosage: 1 DOSAGE FORM, BID
  6. LYRICA [Suspect]
     Active Substance: PREGABALIN
     Dosage: 1 DOSAGE FORM, BID
     Route: 065
  7. LYRICA [Suspect]
     Active Substance: PREGABALIN
     Dosage: 1 DOSAGE FORM, BID
     Route: 065
  8. LYRICA [Suspect]
     Active Substance: PREGABALIN
     Dosage: 1 DOSAGE FORM, BID
  9. XANAX [Concomitant]
     Active Substance: ALPRAZOLAM
  10. XANAX [Concomitant]
     Active Substance: ALPRAZOLAM
     Route: 065
  11. XANAX [Concomitant]
     Active Substance: ALPRAZOLAM
     Route: 065
  12. XANAX [Concomitant]
     Active Substance: ALPRAZOLAM
  13. LOPID [Concomitant]
     Active Substance: GEMFIBROZIL
  14. LOPID [Concomitant]
     Active Substance: GEMFIBROZIL
     Route: 065
  15. LOPID [Concomitant]
     Active Substance: GEMFIBROZIL
     Route: 065
  16. LOPID [Concomitant]
     Active Substance: GEMFIBROZIL
  17. MINITRAN [Concomitant]
     Active Substance: NITROGLYCERIN
  18. MINITRAN [Concomitant]
     Active Substance: NITROGLYCERIN
     Route: 065
  19. MINITRAN [Concomitant]
     Active Substance: NITROGLYCERIN
     Route: 065
  20. MINITRAN [Concomitant]
     Active Substance: NITROGLYCERIN
  21. SEROQUEL [Concomitant]
     Active Substance: QUETIAPINE FUMARATE
  22. SEROQUEL [Concomitant]
     Active Substance: QUETIAPINE FUMARATE
     Route: 065
  23. SEROQUEL [Concomitant]
     Active Substance: QUETIAPINE FUMARATE
     Route: 065
  24. SEROQUEL [Concomitant]
     Active Substance: QUETIAPINE FUMARATE
  25. ASPIRIN [Concomitant]
     Active Substance: ASPIRIN
  26. ASPIRIN [Concomitant]
     Active Substance: ASPIRIN
     Route: 065
  27. ASPIRIN [Concomitant]
     Active Substance: ASPIRIN
     Route: 065
  28. ASPIRIN [Concomitant]
     Active Substance: ASPIRIN
  29. SIMVASTATIN [Concomitant]
     Active Substance: SIMVASTATIN
  30. SIMVASTATIN [Concomitant]
     Active Substance: SIMVASTATIN
     Route: 065
  31. SIMVASTATIN [Concomitant]
     Active Substance: SIMVASTATIN
     Route: 065
  32. SIMVASTATIN [Concomitant]
     Active Substance: SIMVASTATIN

REACTIONS (6)
  - Visual impairment [Recovering/Resolving]
  - Hypersensitivity [Not Recovered/Not Resolved]
  - Lacrimation increased [Not Recovered/Not Resolved]
  - Insomnia [Not Recovered/Not Resolved]
  - Constipation [Not Recovered/Not Resolved]
  - Dysuria [Not Recovered/Not Resolved]
